FAERS Safety Report 6438459-0 (Version None)
Quarter: 2009Q4

REPORT INFORMATION
  Report Type: 
  Country: None (occurrence: None)
  Receive Date: 20091110
  Receipt Date: 20091029
  Transmission Date: 20100525
  Serious: Yes (Life-Threatening, Hospitalization, Other)
  Sender: FDA-Public Use
  Company Number: SPV1-2009-01200

PATIENT
  Age: 3 Year
  Sex: Male
  Weight: 26 kg

DRUGS (9)
  1. ELAPRASE [Suspect]
     Indication: MUCOPOLYSACCHARIDOSIS II
     Dosage: 6 MG, 1X/WEEK, IV DRIP
     Route: 041
     Dates: start: 20080902, end: 20090602
  2. HYDROXYZINE HCL [Concomitant]
  3. PREDNISOLONE ACETATE [Concomitant]
  4. CETIRIZINE HCL [Concomitant]
  5. HEPARINOID (HEPARINOID) [Concomitant]
  6. DIFLUCORTOLONE VALERATE (DIFLUCORTOLONE VALERATE) [Concomitant]
  7. SODIUM PICOSULFATE (SODIUM PICOSULFATE) [Concomitant]
  8. BUDESONIDE [Concomitant]
  9. PROCATEROL HCL [Concomitant]

REACTIONS (8)
  - ANAPHYLACTIC REACTION [None]
  - DYSPNOEA [None]
  - INFUSION RELATED REACTION [None]
  - PRURITUS [None]
  - RASH GENERALISED [None]
  - RESTLESSNESS [None]
  - URTICARIA [None]
  - WHEEZING [None]
